FAERS Safety Report 4467056-1 (Version None)
Quarter: 2004Q4

REPORT INFORMATION
  Report Type: 
  Country: None (occurrence: None)
  Receive Date: 20041004
  Receipt Date: 20040927
  Transmission Date: 20050328
  Serious: Yes (Death)
  Sender: FDA-Public Use
  Company Number: HQ2118830APR2002

PATIENT
  Age: 54 Year
  Sex: Male
  Weight: 90.34 kg

DRUGS (3)
  1. ROBITUSSIN CF [Suspect]
     Dosage: ORAL
     Route: 048
     Dates: end: 20000501
  2. PRIMATENE (EPHEDRINE/GUAIFENESIN) [Concomitant]
  3. PRIMATENE MIST (EPINEPHRINE) [Concomitant]

REACTIONS (6)
  - ARTERIOSCLEROSIS [None]
  - CARDIAC ARREST [None]
  - CEREBRAL HAEMORRHAGE [None]
  - CIRCULATORY COLLAPSE [None]
  - HAEMORRHAGIC STROKE [None]
  - LOSS OF CONSCIOUSNESS [None]
